FAERS Safety Report 5066013-4 (Version None)
Quarter: 2006Q3

REPORT INFORMATION
  Report Type: 
  Country: None (occurrence: None)
  Receive Date: 20060731
  Receipt Date: 20060731
  Transmission Date: 20061208
  Serious: Yes (Death)
  Sender: FDA-Public Use
  Company Number: None

PATIENT
  Age: 50 Year
  Sex: Male
  Weight: 73 kg

DRUGS (10)
  1. DOCETAXEL     80MG/2ML     AVENTIS [Suspect]
     Indication: NON-SMALL CELL LUNG CANCER STAGE III
     Dosage: 147MG   2ND OF 2 CYCLES    IV DRIP
     Route: 041
     Dates: start: 20060421, end: 20060505
  2. GEMCITABINE [Suspect]
     Indication: NON-SMALL CELL LUNG CANCER STAGE III
     Dosage: 1960MG   2ND IF 2 CYCLES    IV DRIP
     Route: 041
     Dates: start: 20060421, end: 20060505
  3. ALBUTEROL SULFATE AND IPRATROPIUM BROMIDE [Concomitant]
  4. DEXAMETHASONE TAB [Concomitant]
  5. MORPHINE [Concomitant]
  6. ONDANSETRON HCL [Concomitant]
  7. OXYCODONE HCL [Concomitant]
  8. RANITIDINE [Concomitant]
  9. SENNOSIDES [Concomitant]
  10. EPO [Concomitant]

REACTIONS (17)
  - ACUTE RESPIRATORY FAILURE [None]
  - ASTHENIA [None]
  - BACTERIA STOOL IDENTIFIED [None]
  - BACTERIAL INFECTION [None]
  - CRYPTOGENIC ORGANISING PNEUMONIA [None]
  - HYPOTENSION [None]
  - INFLAMMATION [None]
  - LUNG DISORDER [None]
  - METASTASES TO LYMPH NODES [None]
  - NAUSEA [None]
  - PNEUMOCYSTIS JIROVECI INFECTION [None]
  - PSEUDOMONAL BACTERAEMIA [None]
  - PULMONARY TOXICITY [None]
  - TACHYCARDIA [None]
  - UPPER RESPIRATORY TRACT INFECTION [None]
  - VIRAL INFECTION [None]
  - VOMITING [None]
